FAERS Safety Report 6107656-6 (Version None)
Quarter: 2009Q1

REPORT INFORMATION
  Report Type: 
  Country: None (occurrence: None)
  Receive Date: 20090306
  Receipt Date: 20090306
  Transmission Date: 20090719
  Serious: No
  Sender: FDA-Public Use
  Company Number: None

PATIENT
  Age: 65 Year
  Sex: Female

DRUGS (1)
  1. EMSAM [Suspect]
     Dosage: 6 MG ONCE TOPICAL
     Dates: start: 20090202, end: 20090203

REACTIONS (2)
  - CHEST PAIN [None]
  - TACHYCARDIA [None]
